FAERS Safety Report 20959957 (Version 6)
Quarter: 2025Q1

REPORT INFORMATION
  Report Type: Spontaneous
  Country: PK (occurrence: PK)
  Receive Date: 20220615
  Receipt Date: 20250130
  Transmission Date: 20250408
  Serious: Yes (Other)
  Sender: AMGEN
  Company Number: PK-PFIZER INC-202200813283

PATIENT
  Age: 46 Year
  Sex: Female

DRUGS (21)
  1. ENBREL [Suspect]
     Active Substance: ETANERCEPT
     Indication: Rheumatoid arthritis
     Dosage: 50 MG, WEEKLY
     Route: 058
     Dates: start: 20211115
  2. ENBREL [Suspect]
     Active Substance: ETANERCEPT
     Dosage: 50 MG, WEEKLY
     Route: 058
  3. ISONIAZID\RIFAMPIN [Concomitant]
     Active Substance: ISONIAZID\RIFAMPIN
     Route: 065
     Dates: start: 202110, end: 202112
  4. CYTOTREXATE [Concomitant]
     Dosage: 1 DF, WEEKLY AFTER BREAKFAST FOR 2 MONTHS
     Route: 065
  5. Trihemic [Concomitant]
     Route: 065
  6. FOLIC ACID [Concomitant]
     Active Substance: FOLIC ACID
     Route: 065
  7. CELECOXIB [Concomitant]
     Active Substance: CELECOXIB
     Route: 065
  8. Astadol [Concomitant]
     Route: 065
  9. BROMAZEPAM [Concomitant]
     Active Substance: BROMAZEPAM
     Route: 048
  10. PROTHIADEN [Concomitant]
     Active Substance: DOTHIEPIN HYDROCHLORIDE
     Route: 048
  11. ARBI D [Concomitant]
     Route: 065
  12. COMBIVAIR [Concomitant]
     Dosage: 400 MG, 2X/DAY IN MORNING AND EVENING WITH 1 REVOLIZER CAP THROUGH NASAL ROUTE FOR 2 MONTHS
     Route: 065
  13. GLUCOPHAGE [Concomitant]
     Active Substance: METFORMIN HYDROCHLORIDE
     Dosage: 1 DF, TWICE A DAY( IN MORNING AND EVENING) AFTER MEAL ORALLY FOR 2 MONTHS
     Route: 048
  14. DELTACORTRIL [Concomitant]
     Active Substance: PREDNISOLONE
     Route: 065
  15. DICLOFENAC SODIUM [Concomitant]
     Active Substance: DICLOFENAC SODIUM
     Dosage: 1 PLUS 1 PLUS 1
     Route: 065
  16. DICLOFENAC SODIUM [Concomitant]
     Active Substance: DICLOFENAC SODIUM
     Route: 065
  17. Gouric [Concomitant]
     Dosage: 1 DF, 2X/WEEK, AFTER BREAKFAST
     Route: 065
  18. Urodonal [Concomitant]
     Dosage: ONCE A DAY, 1 IN ONE GLASS OF WATER TEASPOON, AS NEEDED
     Route: 065
  19. GABICA [Concomitant]
     Dosage: 1 DF, 2X/DAY, AFTER MEAL
     Route: 065
  20. Dolgina [Concomitant]
     Dosage: 1 DF, 1X/DAY, BEFORE BREAKFAST
     Route: 065
  21. MONTELUKAST SODIUM [Concomitant]
     Active Substance: MONTELUKAST SODIUM
     Dosage: 1 DF, 1X/DAY, AFTER DINNER
     Route: 065

REACTIONS (12)
  - Diabetes mellitus [Unknown]
  - Weight decreased [Unknown]
  - Red blood cell sedimentation rate increased [Unknown]
  - C-reactive protein increased [Unknown]
  - Glycosylated haemoglobin increased [Unknown]
  - Blood glucose increased [Unknown]
  - Blood alkaline phosphatase increased [Unknown]
  - Periarthritis [Unknown]
  - Arthralgia [Unknown]
  - Joint swelling [Unknown]
  - Anaemia [Unknown]
  - Haemoglobin decreased [Recovering/Resolving]

NARRATIVE: CASE EVENT DATE: 20220114
